FAERS Safety Report 7285887-X (Version None)
Quarter: 2011Q1

REPORT INFORMATION
  Report Type: 
  Country: None (occurrence: None)
  Receive Date: 20110210
  Receipt Date: 20110207
  Transmission Date: 20110831
  Serious: Yes (Other)
  Sender: FDA-Public Use
  Company Number: CA-PFIZER INC-2010018495

PATIENT
  Age: 55 Year
  Sex: Male
  Weight: 75 kg

DRUGS (7)
  1. PLAVIX [Concomitant]
     Dosage: 75 MG, 1X/DAY
  2. ASPIRIN [Concomitant]
     Dosage: 80 MG, 1X/DAY
  3. LITHIUM CARBONATE [Concomitant]
     Dosage: 300 MG, 4X/DAY
  4. CHAMPIX [Suspect]
     Indication: SMOKING CESSATION THERAPY
     Dosage: UNK
     Dates: start: 20080101
  5. LIPITOR [Concomitant]
     Dosage: 10 UNK, 1X/DAY
  6. GLUCOSAMINE SULFATE [Concomitant]
     Dosage: WITH SHARK CARTILAGE, DAILY
  7. APO-ISOPROLOL [Concomitant]
     Dosage: 5 MG, UNK

REACTIONS (8)
  - ANXIETY [None]
  - DRUG ADMINISTRATION ERROR [None]
  - DEPRESSION [None]
  - DISTURBANCE IN ATTENTION [None]
  - AGGRESSION [None]
  - SUICIDAL IDEATION [None]
  - ACTIVITIES OF DAILY LIVING IMPAIRED [None]
  - EMOTIONAL DISTRESS [None]
